FAERS Safety Report 16811689 (Version 2)
Quarter: 2019Q3

REPORT INFORMATION
  Report Type: Spontaneous
  Country: US (occurrence: US)
  Receive Date: 20190916
  Receipt Date: 20190925
  Transmission Date: 20191005
  Serious: No
  Sender: FDA-Public Use
  Company Number: US-JNJFOC-20190915483

PATIENT
  Sex: Male

DRUGS (1)
  1. STELARA [Suspect]
     Active Substance: USTEKINUMAB
     Indication: PSORIASIS
     Route: 058

REACTIONS (6)
  - Off label use [Unknown]
  - Mood altered [Recovered/Resolved]
  - Anxiety [Recovered/Resolved]
  - Therapeutic response decreased [Unknown]
  - Depression [Recovered/Resolved]
  - Product use issue [Unknown]
